FAERS Safety Report 20818193 (Version 1)
Quarter: 2022Q2

REPORT INFORMATION
  Report Type: Spontaneous
  Country: GB (occurrence: GB)
  Receive Date: 20220512
  Receipt Date: 20220512
  Transmission Date: 20220721
  Serious: Yes (Other)
  Sender: FDA-Public Use
  Company Number: None

PATIENT
  Age: 67 Year
  Sex: Male
  Weight: 102 kg

DRUGS (2)
  1. AMLODIPINE [Suspect]
     Active Substance: AMLODIPINE BESYLATE
     Indication: Hypertension
     Route: 048
     Dates: start: 20210601
  2. RAMIPRIL [Concomitant]
     Active Substance: RAMIPRIL

REACTIONS (3)
  - Hypertension [Unknown]
  - Myocardial infarction [Unknown]
  - Epistaxis [Not Recovered/Not Resolved]

NARRATIVE: CASE EVENT DATE: 20220411
